FAERS Safety Report 8500368-0 (Version None)
Quarter: 2012Q3

REPORT INFORMATION
  Report Type: 
  Country: None (occurrence: None)
  Receive Date: 20120703
  Receipt Date: 20120703
  Transmission Date: 20120928
  Serious: Yes (Other)
  Sender: FDA-Public Use
  Company Number: None

PATIENT
  Age: 65 Year
  Sex: Female
  Weight: 106.5953 kg

DRUGS (3)
  1. FENTANYL [Suspect]
     Indication: CERVICAL SPINAL STENOSIS
     Dosage: 1 PATCH 48 HOURS OCCLUSIVE DRESSING
     Route: 046
     Dates: start: 20120503, end: 20120505
  2. FENTANYL [Suspect]
     Indication: PAIN
     Dosage: 1 PATCH 48 HOURS OCCLUSIVE DRESSING
     Route: 046
     Dates: start: 20120503, end: 20120505
  3. FENTANYL [Suspect]
     Indication: SCOLIOSIS
     Dosage: 1 PATCH 48 HOURS OCCLUSIVE DRESSING
     Route: 046
     Dates: start: 20120503, end: 20120505

REACTIONS (6)
  - WRONG TECHNIQUE IN DRUG USAGE PROCESS [None]
  - APPLICATION SITE ULCER [None]
  - APPLICATION SITE PRURITUS [None]
  - SKIN IRRITATION [None]
  - PRODUCT ADHESION ISSUE [None]
  - APPLICATION SITE RASH [None]
